FAERS Safety Report 6222060-8 (Version None)
Quarter: 2009Q2

REPORT INFORMATION
  Report Type: 
  Country: None (occurrence: None)
  Receive Date: 20090608
  Receipt Date: 20090608
  Transmission Date: 20091009
  Serious: Yes (Other)
  Sender: FDA-Public Use
  Company Number: None

PATIENT
  Age: 61 Year
  Sex: Female
  Weight: 73.9363 kg

DRUGS (1)
  1. ALVESCO [Suspect]

REACTIONS (5)
  - FLUID RETENTION [None]
  - OCULAR HYPERAEMIA [None]
  - PAIN IN EXTREMITY [None]
  - SPIDER VEIN [None]
  - WEIGHT INCREASED [None]
